FAERS Safety Report 22524885 (Version 2)
Quarter: 2023Q2

REPORT INFORMATION
  Report Type: Spontaneous
  Country: US (occurrence: US)
  Receive Date: 20230606
  Receipt Date: 20230622
  Transmission Date: 20230721
  Serious: No
  Sender: FDA-Public Use
  Company Number: US-REGENERON PHARMACEUTICALS, INC.-2023-059362

PATIENT
  Sex: Male

DRUGS (2)
  1. EYLEA [Suspect]
     Active Substance: AFLIBERCEPT
     Indication: Macular degeneration
     Dosage: 2 MG/0.05 ML, EVERY 6-8 WEEKS, RIGHT EYE, FORMULATION: GERRESHEIMER PFS
     Dates: start: 20220713, end: 2023
  2. EYLEA [Suspect]
     Active Substance: AFLIBERCEPT
     Dosage: 2 MG/0.05 ML, EVERY 6-8 WEEKS, RIGHT EYE, FORMULATION: GERRESHEIMER PFS
     Dates: start: 20230420

REACTIONS (2)
  - Product dose omission issue [Recovered/Resolved]
  - Blepharitis [Recovered/Resolved]

NARRATIVE: CASE EVENT DATE: 20230406
